FAERS Safety Report 7546133-2 (Version None)
Quarter: 2011Q2

REPORT INFORMATION
  Report Type: 
  Country: None (occurrence: None)
  Receive Date: 20110614
  Receipt Date: 20030926
  Transmission Date: 20111010
  Serious: Yes (Hospitalization)
  Sender: FDA-Public Use
  Company Number: PHFR2003GB03522

PATIENT
  Sex: Female

DRUGS (1)
  1. CLOZAPINE [Suspect]
     Dosage: 300 MG, QD
     Route: 048
     Dates: start: 20020419

REACTIONS (2)
  - DIABETES MELLITUS [None]
  - CELLULITIS [None]
